FAERS Safety Report 7531176-5 (Version None)
Quarter: 2011Q2

REPORT INFORMATION
  Report Type: 
  Country: None (occurrence: None)
  Receive Date: 20110608
  Receipt Date: 20110601
  Transmission Date: 20111010
  Serious: Yes (Death)
  Sender: FDA-Public Use
  Company Number: DE-US-EMD SERONO, INC.-230002L06DEU

PATIENT
  Age: 61 Year
  Sex: Female

DRUGS (1)
  1. REBIF [Suspect]
     Indication: RELAPSING-REMITTING MULTIPLE SCLEROSIS
     Route: 058
     Dates: start: 19980101, end: 20030101

REACTIONS (5)
  - MYELODYSPLASTIC SYNDROME [None]
  - REFRACTORY ANAEMIA WITH AN EXCESS OF BLASTS [None]
  - ANAEMIA HAEMOLYTIC AUTOIMMUNE [None]
  - ACUTE MYELOID LEUKAEMIA [None]
  - PANCYTOPENIA [None]
